FAERS Safety Report 9539169 (Version 1)
Quarter: 2013Q3

REPORT INFORMATION
  Report Type: Spontaneous
  Country: BR (occurrence: BR)
  Receive Date: 20130920
  Receipt Date: 20130920
  Transmission Date: 20140515
  Serious: Yes (Other)
  Sender: FDA-Public Use
  Company Number: BR-PFIZER INC-2013268093

PATIENT
  Age: 68 Year
  Sex: Female
  Weight: 108 kg

DRUGS (5)
  1. XALATAN [Suspect]
     Dosage: 1 GTT IN EACH EYE, 1X/DAY
     Route: 047
  2. XALATAN [Suspect]
     Dosage: 1 GTT IN ONE EYE, 1XDAY
     Route: 047
  3. AMITRIPTYLINE HYDROCHLORIDE [Concomitant]
  4. METFORMIN HYDROCHLORIDE [Concomitant]
  5. RISPERIDONE [Concomitant]

REACTIONS (1)
  - Eye disorder [Unknown]
